FAERS Safety Report 4738612-8 (Version None)
Quarter: 2005Q3

REPORT INFORMATION
  Report Type: 
  Country: None (occurrence: None)
  Receive Date: 20050802
  Receipt Date: 20050721
  Transmission Date: 20060218
  Serious: Yes (Other)
  Sender: FDA-Public Use
  Company Number: THYM-10614

PATIENT
  Age: 49 Year
  Sex: Male

DRUGS (12)
  1. THYMOGLOBULIN [Suspect]
     Indication: KIDNEY TRANSPLANT REJECTION
     Dates: start: 20050621, end: 20050630
  2. PREDNISONE [Concomitant]
  3. CELLCEPT [Concomitant]
  4. RAPAMUNE [Concomitant]
  5. CALCIUM CITRATE [Concomitant]
  6. SODIUM BICARBONATE [Concomitant]
  7. ARANESP [Concomitant]
  8. NIFEREX FORTE [Concomitant]
  9. ROCALTROL [Concomitant]
  10. VALCYTE [Concomitant]
  11. AMOXICILLIN [Concomitant]
  12. BACTRIM [Concomitant]

REACTIONS (6)
  - DIZZINESS [None]
  - JOINT SWELLING [None]
  - MUSCULOSKELETAL STIFFNESS [None]
  - OEDEMA PERIPHERAL [None]
  - SERUM SICKNESS [None]
  - VERTIGO [None]
